FAERS Safety Report 15290046 (Version 1)
Quarter: 2018Q3

REPORT INFORMATION
  Report Type: Spontaneous
  Country: US (occurrence: US)
  Receive Date: 20180804
  Receipt Date: 20180804
  Transmission Date: 20181010
  Serious: Yes (Hospitalization, Disabling, Other)
  Sender: FDA-Public Use
  Company Number: None

PATIENT
  Age: 53 Year
  Sex: Female
  Weight: 42.75 kg

DRUGS (10)
  1. PREDNISONE. [Concomitant]
     Active Substance: PREDNISONE
  2. ACTHAR [Suspect]
     Active Substance: CORTICOTROPIN
     Indication: SYSTEMIC LUPUS ERYTHEMATOSUS
     Dosage: ?          QUANTITY:80 INJECTION(S);OTHER FREQUENCY:3 DAYS A WEEK.;OTHER ROUTE:SUBCUTANEOUS INJECTION.?
     Route: 058
     Dates: start: 20130623, end: 20160521
  3. PLAQUENIL [Concomitant]
     Active Substance: HYDROXYCHLOROQUINE SULFATE
  4. IBUPROFEN. [Concomitant]
     Active Substance: IBUPROFEN
  5. QUINACRINE [Concomitant]
     Active Substance: QUINACRINE
  6. HYDROXYCHLOROQUINE [Concomitant]
     Active Substance: HYDROXYCHLOROQUINE
  7. HYDROXYZINE [Concomitant]
     Active Substance: HYDROXYZINE HYDROCHLORIDE
  8. LIDOCAINE GEL [Concomitant]
     Active Substance: LIDOCAINE HYDROCHLORIDE
  9. LEVOTHYROXINE. [Concomitant]
     Active Substance: LEVOTHYROXINE
  10. PSYLLIUM HUSK FIBER [Concomitant]

REACTIONS (4)
  - Adrenal mass [None]
  - Memory impairment [None]
  - Disturbance in attention [None]
  - Surgery [None]

NARRATIVE: CASE EVENT DATE: 20160131
